FAERS Safety Report 25026795 (Version 1)
Quarter: 2025Q1

REPORT INFORMATION
  Report Type: Spontaneous
  Country: US (occurrence: US)
  Receive Date: 20250301
  Receipt Date: 20250301
  Transmission Date: 20250409
  Serious: No
  Sender: SANOFI AVENTIS
  Company Number: US-SA-2025SA056350

PATIENT
  Age: 40 Year
  Sex: Male

DRUGS (1)
  1. DUPIXENT [Suspect]
     Active Substance: DUPILUMAB
     Indication: Dermatitis atopic
     Dosage: 300 MG, QOW
     Route: 058
     Dates: start: 20241203

REACTIONS (6)
  - Abdominal discomfort [Unknown]
  - Gastrointestinal inflammation [Unknown]
  - Dermatitis [Unknown]
  - Diarrhoea [Unknown]
  - Pruritus [Unknown]
  - Therapeutic response shortened [Unknown]
